FAERS Safety Report 10010013 (Version 2)
Quarter: 2014Q1

REPORT INFORMATION
  Report Type: Spontaneous
  Country: US (occurrence: US)
  Receive Date: 20140312
  Receipt Date: 20140312
  Transmission Date: 20141002
  Serious: No
  Sender: FDA-Public Use
  Company Number: US-INCYTE CORPORATION-2013IN000492

PATIENT
  Age: 74 Year
  Sex: Male
  Weight: 83.45 kg

DRUGS (2)
  1. JAKAFI [Suspect]
     Indication: MYELOFIBROSIS
     Dosage: 10 MG, BID
     Dates: start: 20130308
  2. HYDROCHLOROTHIAZIDE [Concomitant]

REACTIONS (9)
  - Painful respiration [Unknown]
  - Abdominal pain [Recovered/Resolved]
  - Pain in extremity [Unknown]
  - Pain [Recovered/Resolved]
  - Blood glucose increased [Recovered/Resolved]
  - Splenomegaly [Unknown]
  - Anaemia [Unknown]
  - Dizziness [Unknown]
  - Urinary tract infection [Unknown]
